FAERS Safety Report 20061448 (Version 1)
Quarter: 2021Q4

REPORT INFORMATION
  Report Type: Spontaneous
  Country: JP (occurrence: JP)
  Receive Date: 20211112
  Receipt Date: 20211112
  Transmission Date: 20220303
  Serious: Yes (Other)
  Sender: FDA-Public Use
  Company Number: JP-LUPIN PHARMACEUTICALS INC.-2021-22044

PATIENT
  Age: 3 Year
  Sex: Male

DRUGS (8)
  1. SULFAMETHOXAZOLE AND TRIMETHOPRIM [Suspect]
     Active Substance: SULFAMETHOXAZOLE\TRIMETHOPRIM
     Indication: Chorioretinal disorder
     Dosage: 14 MILLIGRAM/KILOGRAM, QD
     Route: 065
  2. SULFAMETHOXAZOLE AND TRIMETHOPRIM [Suspect]
     Active Substance: SULFAMETHOXAZOLE\TRIMETHOPRIM
     Indication: Eye infection toxoplasmal
  3. ATOVAQUONE [Suspect]
     Active Substance: ATOVAQUONE
     Indication: Chorioretinal disorder
     Dosage: 40 MILLIGRAM/KILOGRAM, QD
     Route: 065
  4. ATOVAQUONE [Suspect]
     Active Substance: ATOVAQUONE
     Indication: Eye infection toxoplasmal
  5. LEUCOVORIN [Concomitant]
     Active Substance: LEUCOVORIN
     Indication: Chorioretinal disorder
     Dosage: 10 MILLIGRAM, TID PER DOSE
     Route: 065
  6. LEUCOVORIN [Concomitant]
     Active Substance: LEUCOVORIN
     Indication: Eye infection toxoplasmal
  7. PREDNISOLONE [Concomitant]
     Active Substance: PREDNISOLONE
     Indication: Chorioretinal disorder
     Dosage: 1 MILLIGRAM/KILOGRAM, QD
     Route: 065
  8. PREDNISOLONE [Concomitant]
     Active Substance: PREDNISOLONE
     Indication: Eye infection toxoplasmal

REACTIONS (2)
  - Drug ineffective for unapproved indication [Unknown]
  - Off label use [Unknown]
